FAERS Safety Report 19865895 (Version 1)
Quarter: 2021Q3

REPORT INFORMATION
  Report Type: Spontaneous
  Country: CZ (occurrence: CZ)
  Receive Date: 20210921
  Receipt Date: 20210921
  Transmission Date: 20211014
  Serious: Yes (Hospitalization)
  Sender: FDA-Public Use
  Company Number: CZ-MYLANLABS-2021M1063840

PATIENT
  Age: 19 Year
  Sex: Female

DRUGS (2)
  1. VASOCARDIN [Concomitant]
     Active Substance: METOPROLOL
     Indication: BLOOD PRESSURE MEASUREMENT
     Dosage: 50 MILLIGRAM
     Route: 065
  2. MIRTAZAPINE. [Suspect]
     Active Substance: MIRTAZAPINE
     Indication: DECREASED APPETITE
     Dosage: 15 MILLIGRAM, QD
     Route: 065

REACTIONS (5)
  - Premature baby [Unknown]
  - Maternal exposure during pregnancy [Unknown]
  - Therapy cessation [Unknown]
  - Foetal growth restriction [Unknown]
  - Product use in unapproved indication [Unknown]
